FAERS Safety Report 9798906 (Version 1)
Quarter: 2013Q4

REPORT INFORMATION
  Report Type: Spontaneous
  Country: IT (occurrence: None)
  Receive Date: 20131231
  Receipt Date: 20131231
  Transmission Date: 20140711
  Serious: Yes (Hospitalization)
  Sender: FDA-Public Use
  Company Number: 2013SA132161

PATIENT
  Age: 76 Year
  Sex: Female

DRUGS (3)
  1. LANTUS (INSULIN GLARGINE) / PARENTERAL / INJECTION, SOLUTION / 100 INTERNATIONAL UNIT (S) / MILLILITRE [Suspect]
     Dosage: TIME TO ONSET: 246 DAY(S) (100 IU/ML)
     Route: 058
  2. METFORMIN (METFORMIN HYDROCHLORIDE) [Suspect]
     Indication: DIABETES MELLITUS
     Route: 048
     Dates: start: 20130101, end: 20130904
  3. NOVORAPID (INSULIN ASPART) [Suspect]
     Indication: DIABETES MELLITUS
     Route: 058
     Dates: start: 20130101, end: 20130904

REACTIONS (3)
  - Confusional state [None]
  - Diabetic ketoacidosis [None]
  - Hyperglycaemia [None]
